FAERS Safety Report 8254625-6 (Version None)
Quarter: 2012Q1

REPORT INFORMATION
  Report Type: 
  Country: None (occurrence: None)
  Receive Date: 20120329
  Receipt Date: 20120314
  Transmission Date: 20120608
  Serious: Yes (Other)
  Sender: FDA-Public Use
  Company Number: 2012030081

PATIENT
  Age: 59 Year
  Sex: Female
  Weight: 86.1834 kg

DRUGS (20)
  1. OXYCONTIN [Suspect]
     Indication: PAIN
     Dates: end: 20120301
  2. ATIVAN [Suspect]
  3. ZOLPIDEM [Suspect]
  4. ALLEGRA [Concomitant]
  5. LORTAB [Suspect]
  6. LEXAPRO [Concomitant]
  7. EFFEXOR XR [Concomitant]
  8. ADVAIR DISKUS 100/50 [Concomitant]
  9. VENTOLIN [Concomitant]
  10. SEROQUEL XR (QUETIAPINE) [Concomitant]
  11. LOVAZA [Concomitant]
  12. COUMADIN [Concomitant]
  13. SINGULAIR [Concomitant]
  14. FLONASE [Concomitant]
  15. NEXIUM [Concomitant]
  16. DIPROLENE (BETAMETHASONE) [Concomitant]
  17. CARISOPRODOL (CARISOPRODOL) [Suspect]
     Indication: PAIN IN EXTREMITY
     Dosage: 350 MG (350 MG, 1 IN 1 D), ORAL; 700 MG
     Route: 048
     Dates: start: 20120306
  18. CARISOPRODOL (CARISOPRODOL) [Suspect]
     Indication: PAIN IN EXTREMITY
     Dosage: 350 MG (350 MG, 1 IN 1 D), ORAL; 700 MG
     Route: 048
     Dates: start: 20111001
  19. REQUIO (ROPINIROLE) [Concomitant]
  20. DEPAKOTRE (VALPROIC ACID) [Concomitant]

REACTIONS (5)
  - ACCIDENTAL OVERDOSE [None]
  - BRONCHITIS [None]
  - INCOHERENT [None]
  - INCORRECT DOSE ADMINISTERED [None]
  - SYNCOPE [None]
